FAERS Safety Report 24998978 (Version 3)
Quarter: 2025Q3

REPORT INFORMATION
  Report Type: Spontaneous
  Country: US (occurrence: US)
  Receive Date: 20250222
  Receipt Date: 20250717
  Transmission Date: 20251021
  Serious: No
  Sender: SANOFI AVENTIS
  Company Number: US-SA-2025SA049974

PATIENT
  Age: 49 Year
  Sex: Female

DRUGS (23)
  1. DUPIXENT [Suspect]
     Active Substance: DUPILUMAB
     Indication: Asthma
     Dosage: 300 MG, QOW
     Route: 058
     Dates: start: 20210202
  2. ACTEMRA [Concomitant]
     Active Substance: TOCILIZUMAB
  3. AZATHIOPRINE [Concomitant]
     Active Substance: AZATHIOPRINE
  4. BELBUCA [Concomitant]
     Active Substance: BUPRENORPHINE HYDROCHLORIDE
  5. BOOSTRIX [Concomitant]
     Active Substance: TETANUS TOXOID, REDUCED DIPHTHERIA TOXOID AND ACELLULAR PERTUSSIS VACCINE ADSORBED, TDAP
  6. BOTOX [Concomitant]
     Active Substance: ONABOTULINUMTOXINA
  7. CLOBETASOL [Concomitant]
     Active Substance: CLOBETASOL
  8. DICLOFENAC SODIUM\MISOPROSTOL [Concomitant]
     Active Substance: DICLOFENAC SODIUM\MISOPROSTOL
  9. ELETRIPTAN [Concomitant]
     Active Substance: ELETRIPTAN
  10. EMGALITY [Concomitant]
     Active Substance: GALCANEZUMAB-GNLM
  11. ESTRADIOL [Concomitant]
     Active Substance: ESTRADIOL
  12. FLUCONAZOLE [Concomitant]
     Active Substance: FLUCONAZOLE
  13. ACETAMINOPHEN\HYDROCODONE [Concomitant]
     Active Substance: ACETAMINOPHEN\HYDROCODONE
  14. KETOROLAC [Concomitant]
     Active Substance: KETOROLAC TROMETHAMINE
  15. MALATHION [Concomitant]
     Active Substance: MALATHION
  16. METHYLPHENIDATE [Concomitant]
     Active Substance: METHYLPHENIDATE
  17. METHYLPREDNISOLONE [Concomitant]
     Active Substance: METHYLPREDNISOLONE
  18. NURTEC ODT [Concomitant]
     Active Substance: RIMEGEPANT SULFATE
  19. OTEZLA [Concomitant]
     Active Substance: APREMILAST
  20. PREDNISONE [Concomitant]
     Active Substance: PREDNISONE
  21. PROMETHAZINE [Concomitant]
     Active Substance: PROMETHAZINE HYDROCHLORIDE
  22. WIXELA INHUB [Concomitant]
     Active Substance: FLUTICASONE PROPIONATE\SALMETEROL XINAFOATE
  23. AZITHROMYCIN [Concomitant]
     Active Substance: AZITHROMYCIN

REACTIONS (6)
  - Pain [Unknown]
  - Nausea [Unknown]
  - Vomiting [Unknown]
  - Activities of daily living decreased [Unknown]
  - Asthma [Unknown]
  - Drug ineffective [Unknown]

NARRATIVE: CASE EVENT DATE: 20250101
